FAERS Safety Report 12812790 (Version 1)
Quarter: 2016Q4

REPORT INFORMATION
  Report Type: Spontaneous
  Country: US (occurrence: US)
  Receive Date: 20161005
  Receipt Date: 20161005
  Transmission Date: 20170207
  Serious: Yes (Hospitalization)
  Sender: FDA-Public Use
  Company Number: US-VERTEX PHARMACEUTICALS-2016-005666

PATIENT
  Sex: Female

DRUGS (6)
  1. ORKAMBI [Suspect]
     Active Substance: IVACAFTOR\LUMACAFTOR
     Indication: CYSTIC FIBROSIS
     Dosage: 400- 250 MG, BID
     Route: 048
     Dates: start: 20150716
  2. ZENPEP [Concomitant]
     Active Substance: PANCRELIPASE AMYLASE\PANCRELIPASE LIPASE\PANCRELIPASE PROTEASE
  3. HUMALOG [Concomitant]
     Active Substance: INSULIN LISPRO
  4. PULMOZYME [Concomitant]
     Active Substance: DORNASE ALFA
  5. KITABIS [Concomitant]
  6. CAYSTON [Concomitant]
     Active Substance: AZTREONAM

REACTIONS (1)
  - Pneumothorax [Unknown]
